FAERS Safety Report 9742720 (Version 1)
Quarter: 2013Q4

REPORT INFORMATION
  Report Type: Spontaneous
  Country: US (occurrence: US)
  Receive Date: 20131210
  Receipt Date: 20131210
  Transmission Date: 20140711
  Serious: No
  Sender: FDA-Public Use
  Company Number: US-GILEAD-2009-0025805

PATIENT
  Sex: Male

DRUGS (12)
  1. LETAIRIS [Suspect]
     Indication: PULMONARY ARTERIAL HYPERTENSION
     Route: 048
     Dates: start: 20091119
  2. INDOMETHACIN [Concomitant]
  3. ALLOPURINOL [Concomitant]
  4. FUROSEMIDE [Concomitant]
  5. LIPITOR [Concomitant]
  6. LOTREL [Concomitant]
  7. GLIMEPIRIDE [Concomitant]
  8. PULMICORT [Concomitant]
  9. COMBIVENT [Concomitant]
  10. PLAVIX [Concomitant]
  11. VITAMIN D [Concomitant]
  12. BROVANA [Concomitant]

REACTIONS (3)
  - Tremor [Unknown]
  - Nervousness [Unknown]
  - No therapeutic response [Unknown]
